FAERS Safety Report 20536481 (Version 1)
Quarter: 2022Q1

REPORT INFORMATION
  Report Type: Spontaneous
  Country: CA (occurrence: CA)
  Receive Date: 20220302
  Receipt Date: 20220302
  Transmission Date: 20220423
  Serious: Yes (Other)
  Sender: FDA-Public Use
  Company Number: CA-JNJFOC-20211202784

PATIENT
  Age: 34 Year
  Sex: Female
  Weight: 86 kg

DRUGS (7)
  1. REMICADE [Suspect]
     Active Substance: INFLIXIMAB
     Indication: Product used for unknown indication
     Route: 042
  2. MAGNESIUM [Concomitant]
     Active Substance: MAGNESIUM
  3. FISH OIL [Concomitant]
     Active Substance: FISH OIL
  4. OXITRIPTAN [Concomitant]
     Active Substance: OXITRIPTAN
  5. PREDNISONE [Concomitant]
     Active Substance: PREDNISONE
     Route: 048
  6. CHOLECALCIFEROL [Concomitant]
     Active Substance: CHOLECALCIFEROL
  7. ZINC [Concomitant]
     Active Substance: ZINC

REACTIONS (5)
  - Crohn^s disease [Unknown]
  - Anal fistula [Unknown]
  - Anal fissure [Unknown]
  - Abscess [Unknown]
  - Off label use [Unknown]
